FAERS Safety Report 7807753-0 (Version None)
Quarter: 2011Q4

REPORT INFORMATION
  Report Type: 
  Country: None (occurrence: None)
  Receive Date: 20111011
  Receipt Date: 20110929
  Transmission Date: 20120403
  Serious: Yes (Hospitalization)
  Sender: FDA-Public Use
  Company Number: US-CELGENEUS-163-21880-11091286

PATIENT
  Sex: Female
  Weight: 55.388 kg

DRUGS (1)
  1. REVLIMID [Suspect]
     Indication: MYELODYSPLASTIC SYNDROME
     Dosage: 5 MILLIGRAM
     Route: 048
     Dates: start: 20110801, end: 20110919

REACTIONS (5)
  - CONFUSIONAL STATE [None]
  - ASTHENIA [None]
  - HALLUCINATION [None]
  - BLOOD PRESSURE DECREASED [None]
  - DYSARTHRIA [None]
